FAERS Safety Report 6739272-7 (Version None)
Quarter: 2010Q2

REPORT INFORMATION
  Report Type: 
  Country: None (occurrence: None)
  Receive Date: 20100524
  Receipt Date: 20100524
  Transmission Date: 20101027
  Serious: No
  Sender: FDA-Public Use
  Company Number: None

PATIENT

DRUGS (1)
  1. LEXAPRO [Suspect]
     Dosage: 20 MG DAILY P.O.
     Route: 048

REACTIONS (1)
  - WEIGHT INCREASED [None]
